FAERS Safety Report 9008229 (Version 2)
Quarter: 2013Q1

REPORT INFORMATION
  Report Type: Spontaneous
  Country: AR (occurrence: AR)
  Receive Date: 20130111
  Receipt Date: 20130201
  Transmission Date: 20140127
  Serious: Yes (Other)
  Sender: FDA-Public Use
  Company Number: PHHY2013AR002623

PATIENT
  Age: 75 Year
  Sex: Female

DRUGS (2)
  1. EXELON [Suspect]
     Dosage: 1 DF, UNK
     Dates: start: 20101019
  2. GALVUS [Concomitant]
     Indication: BLOOD GLUCOSE INCREASED
     Dosage: 50 MG, DAILY
     Route: 048
     Dates: start: 20130106

REACTIONS (5)
  - Head injury [Recovered/Resolved]
  - Fall [Recovered/Resolved]
  - Fear [Recovered/Resolved]
  - Malaise [Recovered/Resolved]
  - Dizziness [Recovered/Resolved]
